FAERS Safety Report 9387405 (Version 1)
Quarter: 2013Q3

REPORT INFORMATION
  Report Type: Spontaneous
  Country: US (occurrence: None)
  Receive Date: 20130703
  Receipt Date: 20130703
  Transmission Date: 20140515
  Serious: Yes (Other)
  Sender: FDA-Public Use
  Company Number: None

PATIENT
  Age: 58 Year
  Sex: Female
  Weight: 56.7 kg

DRUGS (2)
  1. TERBINAFINE 250MG CAMBER [Suspect]
     Dosage: 1 TAB 1 TIME DAILY 250 (1) 250MG DAILY ORAL
     Route: 048
     Dates: start: 20130425, end: 20130522
  2. ITRACONAZOLE [Suspect]
     Dosage: 2 CAPSULES 100 (2) 100MG DAILY ORAL
     Route: 048
     Dates: start: 20130523, end: 20130524

REACTIONS (6)
  - Rash [None]
  - Blister [None]
  - Decreased appetite [None]
  - Joint swelling [None]
  - Pain [None]
  - Musculoskeletal disorder [None]
